FAERS Safety Report 9525935 (Version 2)
Quarter: 2014Q1

REPORT INFORMATION
  Report Type: Spontaneous
  Country: US (occurrence: US)
  Receive Date: 20130916
  Receipt Date: 20140217
  Transmission Date: 20141002
  Serious: No
  Sender: FDA-Public Use
  Company Number: US-BIOGENIDEC-2013BI085462

PATIENT
  Sex: Female

DRUGS (1)
  1. TYSABRI [Suspect]
     Indication: MULTIPLE SCLEROSIS
     Route: 042
     Dates: start: 20130307, end: 20130919

REACTIONS (7)
  - Frustration [Recovered/Resolved]
  - Depressed mood [Recovered/Resolved]
  - Mobility decreased [Recovered/Resolved]
  - Gait disturbance [Not Recovered/Not Resolved]
  - Selective mutism [Recovered/Resolved]
  - Drug ineffective [Recovered/Resolved]
  - Multiple sclerosis [Recovered/Resolved]
